FAERS Safety Report 6924431-0 (Version None)
Quarter: 2010Q3

REPORT INFORMATION
  Report Type: 
  Country: None (occurrence: None)
  Receive Date: 20100811
  Receipt Date: 20100729
  Transmission Date: 20110219
  Serious: Yes (Disabling, Other)
  Sender: FDA-Public Use
  Company Number: 2010GW000604

PATIENT
  Age: 59 Year
  Sex: Female

DRUGS (3)
  1. MAXAIR [Suspect]
     Indication: BRONCHOSPASM
     Dosage: 200 UG; PRN; INH
     Route: 055
  2. ADRENALINE [Concomitant]
  3. ANTIHXBERTENSIVES [Concomitant]

REACTIONS (3)
  - ANAPHYLACTIC REACTION [None]
  - HYPERTENSION [None]
  - MULTIPLE SCLEROSIS [None]
